FAERS Safety Report 8205435-7 (Version None)
Quarter: 2012Q1

REPORT INFORMATION
  Report Type: 
  Country: None (occurrence: None)
  Receive Date: 20120313
  Receipt Date: 20120305
  Transmission Date: 20120608
  Serious: Yes (Death)
  Sender: FDA-Public Use
  Company Number: BR-US-EMD SERONO, INC.-7117328

PATIENT
  Sex: Female

DRUGS (1)
  1. REBIF [Suspect]
     Indication: PRIMARY PROGRESSIVE MULTIPLE SCLEROSIS

REACTIONS (4)
  - MULTI-ORGAN FAILURE [None]
  - OFF LABEL USE [None]
  - PULMONARY EMBOLISM [None]
  - PNEUMONIA [None]
